FAERS Safety Report 9177799 (Version 1)
Quarter: 2012Q4

REPORT INFORMATION
  Report Type: 
  Country: US (occurrence: US)
  Receive Date: 20121011
  Receipt Date: 20121011
  Transmission Date: 20130627
  Serious: Yes (Other)
  Sender: FDA-Public Use
  Company Number: US-RB-045369-12

PATIENT
  Age: 28 Year
  Sex: Female

DRUGS (3)
  1. SUBOXONE TABLET [Suspect]
     Indication: DRUG DEPENDENCE
     Route: 065
     Dates: start: 201111
  2. GENERIC BUPRENORPHINE [Suspect]
     Indication: DRUG DEPENDENCE
     Route: 065
     Dates: end: 20120606
  3. PRENATAL VITAMINS [Concomitant]
     Indication: PREGNANCY
     Dosage: 1 tablet daily
     Route: 065
     Dates: end: 2012

REACTIONS (2)
  - Exposure during pregnancy [Recovered/Resolved]
  - Premature delivery [Recovered/Resolved]
